FAERS Safety Report 13379508 (Version 1)
Quarter: 2017Q1

REPORT INFORMATION
  Report Type: Spontaneous
  Country: US (occurrence: US)
  Receive Date: 20170328
  Receipt Date: 20170328
  Transmission Date: 20170429
  Serious: No
  Sender: FDA-Public Use
  Company Number: US-SHIRE-US201706897

PATIENT

DRUGS (1)
  1. VYVANSE [Suspect]
     Active Substance: LISDEXAMFETAMINE DIMESYLATE
     Indication: PAIN MANAGEMENT
     Dosage: UNK, UNKNOWN
     Route: 048

REACTIONS (2)
  - No adverse event [Unknown]
  - Off label use [Unknown]
